FAERS Safety Report 7636079-3 (Version None)
Quarter: 2011Q3

REPORT INFORMATION
  Report Type: 
  Country: None (occurrence: None)
  Receive Date: 20110726
  Receipt Date: 20110715
  Transmission Date: 20111222
  Serious: Yes (Hospitalization)
  Sender: FDA-Public Use
  Company Number: AT-ROCHE-790632

PATIENT
  Sex: Female
  Weight: 83 kg

DRUGS (7)
  1. EPIRUBICIN [Suspect]
     Dosage: FORM: VIALS LAST DOSE PRIOR TO SAE: 02 JUNE 2010
     Route: 042
     Dates: start: 20100311
  2. TRASTUZUMAB [Suspect]
     Dosage: FORM: VIALS LAST DOSE PRIOR TO SAE: 07 APRIL 2011
     Route: 042
     Dates: start: 20100311
  3. IVOR [Concomitant]
     Dosage: REPORTED AS: IVOR 3500 FREQUENCY: IE
     Dates: start: 20110414, end: 20110414
  4. DOCETAXEL [Suspect]
     Dosage: FORM: VIALS LAST DOSE PRIOR TO SAE: 22 APRIL 2010
     Route: 042
     Dates: start: 20100311
  5. FLUOROURACIL [Suspect]
     Dosage: FORM: VIALS LAST DOSE PRIOR TO SAE: 22 JUNE 2010
     Route: 042
     Dates: start: 20100514
  6. BEVACIZUMAB [Suspect]
     Dosage: FORM: VIALS LAST DOSE PRIOR TO SAE: 02 DECEMBER 2010
     Route: 042
     Dates: start: 20100311, end: 20101202
  7. CYCLOPHOSPHAMIDE [Suspect]
     Dosage: UNIT: MG/M2 FORM: VIALS LAST DOSE PRIOR TO SAE: 22 JUNE 2010
     Route: 042
     Dates: start: 20100311

REACTIONS (1)
  - IMPAIRED HEALING [None]
